FAERS Safety Report 7810069 (Version 3)
Quarter: 2013Q2

REPORT INFORMATION
  Report Type: Spontaneous
  Country: US (occurrence: None)
  Receive Date: 20101130
  Receipt Date: 20121203
  Transmission Date: 20140414
  Serious: Yes (Hospitalization)
  Sender: FDA-Public Use
  Company Number: 2009SP040687

PATIENT
  Age: 21 Year
  Sex: Female
  Weight: 72.6 kg

DRUGS (1)
  1. NUVARING (ETONOGESTREL (+) ETHINYL ESTRADIOL) VAGINAL RING [Suspect]
     Indication: CONTRACEPTION
     Dates: start: 20071010, end: 200711

REACTIONS (13)
  - SUPERIOR SAGITTAL SINUS THROMBOSIS [None]
  - Abdominal pain [None]
  - Cellulitis [None]
  - Pelvic pain [None]
  - Pelvic inflammatory disease [None]
  - Haematuria [None]
  - Headache [None]
  - Pruritus [None]
  - Appendicitis [None]
  - Staphylococcal infection [None]
  - Calculus ureteric [None]
  - Nausea [None]
  - Vomiting [None]
